FAERS Safety Report 5988657-5 (Version None)
Quarter: 2008Q4

REPORT INFORMATION
  Report Type: 
  Country: None (occurrence: None)
  Receive Date: 20081210
  Receipt Date: 20081201
  Transmission Date: 20090506
  Serious: Yes (Death)
  Sender: FDA-Public Use
  Company Number: CZ-PFIZER INC-2008101490

PATIENT

DRUGS (1)
  1. SUNITINIB MALATE [Suspect]

REACTIONS (1)
  - DEATH [None]
